FAERS Safety Report 5122420-2 (Version None)
Quarter: 2006Q4

REPORT INFORMATION
  Report Type: 
  Country: None (occurrence: None)
  Receive Date: 20061004
  Receipt Date: 20060922
  Transmission Date: 20070319
  Serious: Yes (Other)
  Sender: FDA-Public Use
  Company Number: HQWYE126925SEP06

PATIENT
  Age: 63 Year
  Sex: Male
  Weight: 78.54 kg

DRUGS (3)
  1. ADVIL [Suspect]
     Indication: BACK PAIN
     Dosage: 3 LIQUI-GELS TWICE DAILY, ORAL
     Route: 048
     Dates: start: 20060920, end: 20060920
  2. GLYBURIDE [Concomitant]
  3. METFORMIN HCL [Concomitant]

REACTIONS (2)
  - CHEST DISCOMFORT [None]
  - THROMBOSIS [None]
